FAERS Safety Report 4502622-6 (Version None)
Quarter: 2004Q4

REPORT INFORMATION
  Report Type: 
  Country: None (occurrence: None)
  Receive Date: 20041110
  Receipt Date: 20041027
  Transmission Date: 20050328
  Serious: Yes (Hospitalization, Disabling)
  Sender: FDA-Public Use
  Company Number: A02200403046

PATIENT
  Age: 74 Year
  Sex: Male

DRUGS (9)
  1. ELOXATIN [Suspect]
     Indication: COLON CANCER METASTATIC
     Dosage: 130 MG/M2
     Route: 042
     Dates: start: 20040916, end: 20040916
  2. TOMUDEX (RALTITREXED) [Concomitant]
  3. ASPEGIC 1000 [Concomitant]
  4. SECTRAL [Concomitant]
  5. CORDARONE [Concomitant]
  6. LASILIZ (FUROSEMIDE) [Concomitant]
  7. IKOREL (NICORANDIL) [Concomitant]
  8. PRIMPERAN TAB [Concomitant]
  9. ONDANSETRON HYDROCHLORIDE [Concomitant]

REACTIONS (11)
  - ANAESTHESIA [None]
  - ATAXIA [None]
  - BLOOD PRESSURE INCREASED [None]
  - CONDITION AGGRAVATED [None]
  - DIFFICULTY IN WALKING [None]
  - DYSPNOEA [None]
  - GUILLAIN-BARRE SYNDROME [None]
  - HYPOXIA [None]
  - MICTURITION DISORDER [None]
  - NEUROTOXICITY [None]
  - PARAESTHESIA ORAL [None]
